FAERS Safety Report 4851348-8 (Version None)
Quarter: 2005Q4

REPORT INFORMATION
  Report Type: 
  Country: None (occurrence: None)
  Receive Date: 20051212
  Receipt Date: 20051130
  Transmission Date: 20060501
  Serious: Yes (Hospitalization)
  Sender: FDA-Public Use
  Company Number: PHEH2005US13070

PATIENT

DRUGS (6)
  1. PREDNISONE [Concomitant]
  2. M.V.I. [Concomitant]
  3. SANDIMMUNE [Suspect]
     Indication: HEART TRANSPLANT
     Dosage: 100 MG, BID
     Route: 048
  4. MAGNESIUM SUPPLEMENTS [Concomitant]
  5. ENALAPRIL [Concomitant]
  6. PRAVACHOL [Concomitant]

REACTIONS (3)
  - BLOOD CREATININE INCREASED [None]
  - DRUG LEVEL DECREASED [None]
  - IMPETIGO [None]
